FAERS Safety Report 19303690 (Version 1)
Quarter: 2021Q2

REPORT INFORMATION
  Report Type: Spontaneous
  Country: US (occurrence: US)
  Receive Date: 20210525
  Receipt Date: 20210525
  Transmission Date: 20210717
  Serious: No
  Sender: FDA-Public Use
  Company Number: US-GLAUKOS-AVE-2020-0282-AE

PATIENT
  Age: 20 Year
  Sex: Female

DRUGS (2)
  1. PHOTREXA VISCOUS [Suspect]
     Active Substance: RIBOFLAVIN 5^-PHOSPHATE SODIUM
     Indication: KERATOCONUS
     Route: 047
     Dates: start: 20201202, end: 20201202
  2. PHOTREXA [Suspect]
     Active Substance: RIBOFLAVIN 5^-PHOSPHATE SODIUM
     Indication: KERATOCONUS
     Dosage: 3 MINUTES
     Route: 047
     Dates: start: 20201202, end: 20201202

REACTIONS (3)
  - Therapy cessation [Unknown]
  - Dry eye [Unknown]
  - Corneal thinning [Unknown]

NARRATIVE: CASE EVENT DATE: 20201202
